FAERS Safety Report 5215206-1 (Version None)
Quarter: 2007Q1

REPORT INFORMATION
  Report Type: 
  Country: None (occurrence: None)
  Receive Date: 20070117
  Receipt Date: 20070102
  Transmission Date: 20070707
  Serious: Yes (Disabling)
  Sender: FDA-Public Use
  Company Number: 234097

PATIENT
  Age: 65 Year
  Sex: Male

DRUGS (2)
  1. RAPTIVA [Suspect]
     Indication: PSORIASIS
     Dosage: 1 MG/KG, 1/WEEK
     Dates: end: 20061010
  2. FOSINOPRIL SODIUM [Concomitant]

REACTIONS (1)
  - LEIOMYOSARCOMA [None]
